FAERS Safety Report 6275913-9 (Version None)
Quarter: 2009Q3

REPORT INFORMATION
  Report Type: 
  Country: None (occurrence: None)
  Receive Date: 20090720
  Receipt Date: 20090708
  Transmission Date: 20100115
  Serious: Yes (Hospitalization)
  Sender: FDA-Public Use
  Company Number: 8048793

PATIENT
  Age: 45 Year
  Sex: Male

DRUGS (1)
  1. CIMZIA [Suspect]
     Dosage: 400 MG, SC
     Route: 058
     Dates: start: 20090129

REACTIONS (2)
  - BLOOD CULTURE POSITIVE [None]
  - DIARRHOEA [None]
